FAERS Safety Report 6295679-6 (Version None)
Quarter: 2009Q3

REPORT INFORMATION
  Report Type: 
  Country: None (occurrence: None)
  Receive Date: 20090803
  Receipt Date: 20090803
  Transmission Date: 20100115
  Serious: No
  Sender: FDA-Public Use
  Company Number: None

PATIENT
  Age: 38 Year
  Sex: Female

DRUGS (3)
  1. AZITHROMYCIN [Suspect]
     Dates: start: 20070823, end: 20070828
  2. CEPHALEXIN [Suspect]
     Dates: start: 20070813, end: 20070823
  3. CORZIDE [Concomitant]

REACTIONS (9)
  - COUGH [None]
  - FATIGUE [None]
  - HEPATITIS CHOLESTATIC [None]
  - HEPATOTOXICITY [None]
  - NO REACTION ON PREVIOUS EXPOSURE TO DRUG [None]
  - RASH [None]
  - RENAL FAILURE ACUTE [None]
  - SIALOADENITIS [None]
  - TUBULOINTERSTITIAL NEPHRITIS [None]
